FAERS Safety Report 5872528-9 (Version None)
Quarter: 2008Q3

REPORT INFORMATION
  Report Type: 
  Country: None (occurrence: None)
  Receive Date: 20080902
  Receipt Date: 20080819
  Transmission Date: 20090109
  Serious: Yes (Other)
  Sender: FDA-Public Use
  Company Number: 2007-04108

PATIENT
  Age: 47 Year
  Sex: Male
  Weight: 60 kg

DRUGS (25)
  1. VELCADE [Suspect]
     Indication: MULTIPLE MYELOMA
     Dosage: 2.1 MG, INTRAVENOUS; 2.00 MG, INTRAVENOUS
     Route: 042
     Dates: start: 20070615, end: 20070625
  2. VELCADE [Suspect]
     Indication: MULTIPLE MYELOMA
     Dosage: 2.1 MG, INTRAVENOUS; 2.00 MG, INTRAVENOUS
     Route: 042
     Dates: start: 20070803, end: 20070806
  3. DEXAMETHASONE TAB [Suspect]
     Indication: MULTIPLE MYELOMA
     Dosage: 12.00 MG, ORAL
     Route: 048
     Dates: start: 20070615, end: 20070804
  4. OXYCONTIN [Suspect]
     Indication: DRUG USE FOR UNKNOWN INDICATION
     Dosage: 240.00 MG, ORAL; 80.00 MG, ORAL; 60.00 MG, ORAL; 40.00 MG, ORAL
     Route: 048
     Dates: start: 20070613, end: 20070619
  5. OXYCONTIN [Suspect]
     Indication: DRUG USE FOR UNKNOWN INDICATION
     Dosage: 240.00 MG, ORAL; 80.00 MG, ORAL; 60.00 MG, ORAL; 40.00 MG, ORAL
     Route: 048
     Dates: start: 20070620, end: 20070626
  6. OXYCONTIN [Suspect]
     Indication: DRUG USE FOR UNKNOWN INDICATION
     Dosage: 240.00 MG, ORAL; 80.00 MG, ORAL; 60.00 MG, ORAL; 40.00 MG, ORAL
     Route: 048
     Dates: start: 20070627, end: 20070629
  7. OXYCONTIN [Suspect]
     Indication: DRUG USE FOR UNKNOWN INDICATION
     Dosage: 240.00 MG, ORAL; 80.00 MG, ORAL; 60.00 MG, ORAL; 40.00 MG, ORAL
     Route: 048
     Dates: start: 20070630
  8. ALESION (EPINASTINE HYDROCHLORIDE) [Concomitant]
  9. LAMIVUDINE [Concomitant]
  10. ZOVIRAX [Concomitant]
  11. LOXONIN (LOXOPROFEN SODIUM) [Concomitant]
  12. MUCOSTA (REBAMIPIDE) [Concomitant]
  13. POLYCARBOPHIL CALCIUM (POLYCARBOPHIL CALCIUM) [Concomitant]
  14. LAC B (LACTOBACILLUS BIFDUS, LYOPHILIZED) [Concomitant]
  15. HALCION [Concomitant]
  16. MAXIPIME [Concomitant]
  17. PROSTARMON F (DINOPROST) [Concomitant]
  18. VANCOMYCIN [Concomitant]
  19. INOVAN (DOPAMINE HYDRCHLORIDE) [Concomitant]
  20. ZANTAC [Concomitant]
  21. ACECOL (TEMOCAPRIL HYDROCHLORIDE) [Concomitant]
  22. MYSER (DIFLUPREDNATE) [Concomitant]
  23. POTACOL-R (SODIUM LACTATE, SODIUM CHLORIDE, MALTOSE, POTSSIUM CHLORIDE [Concomitant]
  24. SOLDEM 3A (SODIUM LACTATE, POTASSIUM CHLORIDE, CARBOHYDRATES NOS, SODI [Concomitant]
  25. SOLDEM 1 (GLUCOSE, SODIUM LACTATE, SODIUM CHLORIDE) [Concomitant]

REACTIONS (16)
  - ABDOMINAL DISTENSION [None]
  - BACTERAEMIA [None]
  - BLOOD CREATININE INCREASED [None]
  - BLOOD PRESSURE DECREASED [None]
  - BLOOD UREA INCREASED [None]
  - DEPRESSED LEVEL OF CONSCIOUSNESS [None]
  - DIARRHOEA [None]
  - ERYTHEMA [None]
  - GASTROENTERITIS SALMONELLA [None]
  - HERPES ZOSTER [None]
  - HYPOAESTHESIA [None]
  - LYMPHOCYTE COUNT DECREASED [None]
  - PNEUMONIA [None]
  - RENAL FAILURE ACUTE [None]
  - SKIN EXFOLIATION [None]
  - STAPHYLOCOCCAL INFECTION [None]
